FAERS Safety Report 8913717 (Version 1)
Quarter: 2012Q4

REPORT INFORMATION
  Report Type: 
  Country: BR (occurrence: BR)
  Receive Date: 20121119
  Receipt Date: 20121119
  Transmission Date: 20130627
  Serious: Yes (Hospitalization)
  Sender: FDA-Public Use
  Company Number: BR-JNJFOC-20121003370

PATIENT
  Age: 52 None
  Sex: Female
  Weight: 54 kg

DRUGS (2)
  1. INVEGA SUSTENNA [Suspect]
     Indication: SCHIZOPHRENIA
     Route: 030
     Dates: start: 2012
  2. INVEGA SUSTENNA [Suspect]
     Indication: SCHIZOPHRENIA
     Route: 030
     Dates: start: 201204

REACTIONS (3)
  - Hospitalisation [Not Recovered/Not Resolved]
  - Blood prolactin increased [Unknown]
  - Galactorrhoea [Not Recovered/Not Resolved]
